FAERS Safety Report 16242523 (Version 2)
Quarter: 2019Q2

REPORT INFORMATION
  Report Type: Report from Study
  Country: US (occurrence: US)
  Receive Date: 20190426
  Receipt Date: 20190502
  Transmission Date: 20190711
  Serious: Yes (Hospitalization)
  Sender: FDA-Public Use
  Company Number: US-GILEAD-2019-0402253

PATIENT
  Age: 76 Year
  Sex: Female

DRUGS (3)
  1. AMBRISENTAN [Suspect]
     Active Substance: AMBRISENTAN
     Indication: PRODUCT USED FOR UNKNOWN INDICATION
     Dosage: 5 MG, QD
     Route: 065
     Dates: start: 20190412
  2. DILTIAZEM. [Concomitant]
     Active Substance: DILTIAZEM
  3. ELIQUIS [Concomitant]
     Active Substance: APIXABAN

REACTIONS (18)
  - Anaemia [Unknown]
  - Pain in extremity [Not Recovered/Not Resolved]
  - Dysuria [Not Recovered/Not Resolved]
  - Dyspnoea [Unknown]
  - Chest discomfort [Not Recovered/Not Resolved]
  - Productive cough [Not Recovered/Not Resolved]
  - Swelling [Not Recovered/Not Resolved]
  - Abdominal distension [Not Recovered/Not Resolved]
  - Fluid retention [Unknown]
  - Dry skin [Not Recovered/Not Resolved]
  - Pruritus [Not Recovered/Not Resolved]
  - Peripheral swelling [Not Recovered/Not Resolved]
  - Burning sensation [Unknown]
  - Dyspnoea [Not Recovered/Not Resolved]
  - Secretion discharge [Not Recovered/Not Resolved]
  - Vaginal discharge [Not Recovered/Not Resolved]
  - Product use issue [Not Recovered/Not Resolved]
  - Arthritis [Not Recovered/Not Resolved]
